FAERS Safety Report 7797228-X (Version None)
Quarter: 2011Q4

REPORT INFORMATION
  Report Type: 
  Country: None (occurrence: None)
  Receive Date: 20111005
  Receipt Date: 20110929
  Transmission Date: 20120403
  Serious: Yes (Death, Hospitalization)
  Sender: FDA-Public Use
  Company Number: PHHY2011AT63018

PATIENT
  Sex: Female

DRUGS (13)
  1. RILMENIDINE [Concomitant]
     Dosage: 1 MG, BID
     Route: 048
  2. AFINITOR [Suspect]
     Dosage: 10 MG, DAILY
     Dates: start: 20110215
  3. CLOPIDOGREL [Concomitant]
     Dosage: 1 DF, DAILY
     Route: 048
     Dates: start: 20110118
  4. EZETIMIBE [Concomitant]
     Dosage: 1 DF, DAILY
     Route: 048
  5. AMLODIPINE [Concomitant]
     Dosage: 2 DF, DAILY
     Route: 048
     Dates: start: 20110228
  6. INDAPAMIDE [Concomitant]
     Dosage: 1 DF, DAILY
     Route: 048
     Dates: start: 20110228
  7. EXFORGE HCT [Suspect]
  8. LEVOTHYROXINE SODIUM [Concomitant]
     Dosage: 0.5 DF, DAILY
     Route: 048
  9. PANTOPRAZOLE SODIUM [Concomitant]
     Dosage: 1 DF, DAILY
     Route: 048
  10. EXFORGE [Suspect]
     Dosage: 1 DF, BID
     Route: 048
     Dates: start: 20110118, end: 20110228
  11. ASPIRIN [Concomitant]
     Dosage: 1 DF, DAILY
     Route: 048
     Dates: start: 20110118
  12. ITERIAM [Concomitant]
  13. CARVEDILOL [Concomitant]
     Dosage: 25 MG, BID
     Route: 048

REACTIONS (6)
  - CARDIAC FAILURE [None]
  - BLOOD CREATININE INCREASED [None]
  - ISCHAEMIC CARDIOMYOPATHY [None]
  - NEOPLASM MALIGNANT [None]
  - BLOOD POTASSIUM INCREASED [None]
  - NEOPLASM PROGRESSION [None]
